FAERS Safety Report 6874837-3 (Version None)
Quarter: 2010Q2

REPORT INFORMATION
  Report Type: 
  Country: None (occurrence: None)
  Receive Date: 20100610
  Receipt Date: 20100219
  Transmission Date: 20101027
  Serious: No
  Sender: FDA-Public Use
  Company Number: 2010SP011702

PATIENT
  Sex: Male

DRUGS (3)
  1. SAPHRIS [Suspect]
     Indication: BIPOLAR DISORDER
     Dosage: 5 MG;BID
     Dates: start: 20100121, end: 20100125
  2. DEPAKOTE ER [Concomitant]
  3. PROZAC [Concomitant]

REACTIONS (2)
  - DYSGEUSIA [None]
  - NIGHTMARE [None]
